FAERS Safety Report 4635244-7 (Version None)
Quarter: 2005Q2

REPORT INFORMATION
  Report Type: 
  Country: None (occurrence: None)
  Receive Date: 20050414
  Receipt Date: 20050127
  Transmission Date: 20051028
  Serious: Yes (Hospitalization)
  Sender: FDA-Public Use
  Company Number: PHFR2005GB00730

PATIENT
  Age: 53 Year
  Sex: Female
  Weight: 65 kg

DRUGS (13)
  1. CLOZARIL [Suspect]
     Indication: SCHIZOAFFECTIVE DISORDER
     Dosage: 12 X 50MG OVERDOSE
     Route: 048
     Dates: start: 20050126
  2. CLOZARIL [Suspect]
     Dosage: 150MG + 350MG
     Route: 048
     Dates: start: 20050107
  3. LACTULOSE [Concomitant]
     Indication: CONSTIPATION
     Dosage: 20 ML/DAY
     Route: 048
     Dates: start: 20050128
  4. SENNA [Concomitant]
     Indication: CONSTIPATION
     Route: 048
     Dates: start: 20050128
  5. TOPIRAMATE [Suspect]
     Dosage: 2 X 150MG
     Route: 048
     Dates: start: 20050128
  6. TOPIRAMATE [Suspect]
     Dosage: 9 X 150MG OVERDOSE
     Route: 048
     Dates: start: 20050126
  7. TOPIRAMATE [Suspect]
     Dosage: 200 MG, BID
     Dates: start: 20050107
  8. PIRENZEPINE [Suspect]
     Dosage: 6 X 50MG OVERDOSE
     Dates: start: 20050126
  9. PIRENZEPINE [Suspect]
     Dates: start: 20050128
  10. PIRENZEPINE [Suspect]
     Dosage: 100 MG NOCTE
     Dates: start: 20050107
  11. FEMOSTON ^EURIMPHARM^ [Concomitant]
     Dosage: 10 MG/DAY
  12. AMLODIPINE [Concomitant]
     Indication: HYPERTENSION
     Dosage: 55 MG, QD
     Dates: start: 20050107
  13. AMLODIPINE [Concomitant]
     Dosage: 5 MG/DAY
     Route: 048
     Dates: start: 20050128

REACTIONS (4)
  - ABDOMINAL PAIN [None]
  - MALAISE [None]
  - NAUSEA [None]
  - OVERDOSE [None]
